FAERS Safety Report 23217329 (Version 2)
Quarter: 2023Q4

REPORT INFORMATION
  Report Type: Report from Study
  Country: PE (occurrence: PE)
  Receive Date: 20231122
  Receipt Date: 20231222
  Transmission Date: 20240110
  Serious: Yes (Hospitalization, Other)
  Sender: FDA-Public Use
  Company Number: PE-Merck Healthcare KGaA-2023488502

PATIENT
  Age: 7 Year
  Sex: Male

DRUGS (1)
  1. SAIZEN [Suspect]
     Active Substance: SOMATROPIN
     Indication: Growth hormone deficiency
     Dosage: ALUETTA 12 (UNIT UNSPECIFIED)
     Route: 058
     Dates: start: 20220217, end: 20230926

REACTIONS (4)
  - Pyrexia [Recovered/Resolved]
  - Leukaemia [Unknown]
  - Lymphadenopathy [Unknown]
  - Bacterial infection [Unknown]

NARRATIVE: CASE EVENT DATE: 20231112
